FAERS Safety Report 10551366 (Version 1)
Quarter: 2014Q4

REPORT INFORMATION
  Report Type: Spontaneous
  Country: US (occurrence: None)
  Receive Date: 20141028
  Receipt Date: 20141028
  Transmission Date: 20150529
  Serious: No
  Sender: FDA-Public Use
  Company Number: None

PATIENT
  Age: 50 Year
  Sex: Female

DRUGS (12)
  1. RIBAVIRIN. [Suspect]
     Active Substance: RIBAVIRIN
     Dosage: 1200 MG DAILY PO
     Route: 048
  2. LISINOPRIL TAB [Concomitant]
  3. METFORMIN [Concomitant]
     Active Substance: METFORMIN HYDROCHLORIDE
  4. SOVALDI [Suspect]
     Active Substance: SOFOSBUVIR
     Indication: HEPATITIS
     Dosage: 400 MG TAB EVERY MORNING PO
     Route: 048
     Dates: start: 20140717
  5. VITAMIN D [Concomitant]
     Active Substance: CHOLECALCIFEROL
  6. LEVOXYL [Concomitant]
     Active Substance: LEVOTHYROXINE SODIUM
  7. GARLIC. [Concomitant]
     Active Substance: GARLIC
  8. SERTRALINE TAB [Concomitant]
  9. DOCUSATE SODIUM. [Concomitant]
     Active Substance: DOCUSATE SODIUM
  10. MULTI TAB [Concomitant]
  11. VITAMIN B-12 SUB [Concomitant]
  12. FOLIC ACID. [Concomitant]
     Active Substance: FOLIC ACID

REACTIONS (4)
  - Blood potassium decreased [None]
  - Platelet count decreased [None]
  - Haematemesis [None]
  - Intestinal haemorrhage [None]

NARRATIVE: CASE EVENT DATE: 201409
